FAERS Safety Report 7115347-8 (Version None)
Quarter: 2010Q4

REPORT INFORMATION
  Report Type: 
  Country: None (occurrence: None)
  Receive Date: 20101122
  Receipt Date: 20101115
  Transmission Date: 20110411
  Serious: Yes (Other)
  Sender: FDA-Public Use
  Company Number: JP-BRISTOL-MYERS SQUIBB COMPANY-15392533

PATIENT
  Age: 66 Year
  Sex: Female

DRUGS (1)
  1. VEPESID [Suspect]
     Indication: HISTIOCYTOSIS HAEMATOPHAGIC
     Route: 041
     Dates: start: 20100801, end: 20100101

REACTIONS (1)
  - CEREBRAL INFARCTION [None]
